FAERS Safety Report 6294777-0 (Version None)
Quarter: 2009Q3

REPORT INFORMATION
  Report Type: 
  Country: None (occurrence: None)
  Receive Date: 20090731
  Receipt Date: 20090731
  Transmission Date: 20100115
  Serious: Yes (Life-Threatening, Other)
  Sender: FDA-Public Use
  Company Number: None

PATIENT
  Age: 65 Year
  Sex: Female
  Weight: 61.2356 kg

DRUGS (1)
  1. HALDOL [Suspect]
     Dosage: 1 TABLET 1 TAB @ BEDTIME PO
     Route: 048
     Dates: start: 20090702, end: 20090724

REACTIONS (2)
  - ORAL DISORDER [None]
  - TONGUE DISORDER [None]
